FAERS Safety Report 4448834-1 (Version None)
Quarter: 2004Q3

REPORT INFORMATION
  Report Type: 
  Country: None (occurrence: None)
  Receive Date: 20040909
  Receipt Date: 20040824
  Transmission Date: 20050211
  Serious: Yes (Hospitalization)
  Sender: FDA-Public Use
  Company Number: DSA_24873_2004

PATIENT
  Age: 73 Year
  Sex: Female
  Weight: 79.9 kg

DRUGS (19)
  1. ISORDIL [Suspect]
     Indication: CORONARY ARTERY DISEASE
     Dosage: 20 MG TID PO
     Route: 048
  2. DIGOXIN [Suspect]
     Indication: CARDIAC DISORDER
     Dosage: 0.125 MG QOD PO
     Route: 048
  3. ALDACTONE [Suspect]
     Indication: CARDIAC DISORDER
     Dosage: 12.5 MG QD PO
     Route: 048
  4. HYDRALAZINE HCL [Suspect]
     Indication: CARDIAC DISORDER
     Dosage: 50 MG TID PO
     Route: 048
  5. METOPROLOL [Suspect]
     Indication: CARDIAC DISORDER
     Dosage: 100 MG BID PO
     Route: 048
  6. COUMADIN [Suspect]
     Indication: COAGULOPATHY
     Dosage: 3 MG QD PO
     Route: 048
  7. ASPIRIN [Suspect]
     Indication: CORONARY ARTERY DISEASE
     Dosage: 81 MG Q DAY PO
     Route: 048
  8. AMITRIPTYLINE HCL [Concomitant]
  9. LIPITOR [Concomitant]
  10. TUMS [Concomitant]
  11. FIBERCON [Concomitant]
  12. COLACE [Concomitant]
  13. LEXAPRO [Concomitant]
  14. PREMARIN [Concomitant]
  15. ZANTAC [Concomitant]
  16. INSULIN [Concomitant]
  17. NOVOLOG [Concomitant]
  18. NITROGLYCERIN ^A.L.^ [Concomitant]
  19. AMOXICILLIN [Concomitant]

REACTIONS (20)
  - ABDOMINAL PAIN [None]
  - ASCITES [None]
  - ATELECTASIS [None]
  - BACK PAIN [None]
  - CARDIOMEGALY [None]
  - CHEST X-RAY ABNORMAL [None]
  - CONDITION AGGRAVATED [None]
  - DRUG INTERACTION [None]
  - EATING DISORDER [None]
  - FAECAL INCONTINENCE [None]
  - GASTROINTESTINAL HAEMORRHAGE [None]
  - HAEMATOCRIT DECREASED [None]
  - HAEMOGLOBIN DECREASED [None]
  - HEPATIC CIRRHOSIS [None]
  - NAUSEA [None]
  - PANCREATITIS ACUTE [None]
  - PLEURAL EFFUSION [None]
  - PULMONARY HYPERTENSION [None]
  - RECTAL HAEMORRHAGE [None]
  - SPLEEN DISORDER [None]
